FAERS Safety Report 8814737 (Version 2)
Quarter: 2012Q4

REPORT INFORMATION
  Report Type: 
  Country: FR (occurrence: FR)
  Receive Date: 20120928
  Receipt Date: 20121016
  Transmission Date: 20130627
  Serious: Yes (Hospitalization)
  Sender: FDA-Public Use
  Company Number: FR-GENZYME-THYM-1003427

PATIENT
  Age: 62 Year
  Sex: Female

DRUGS (6)
  1. THYMOGLOBULINE [Suspect]
     Indication: PROPHYLAXIS AGAINST GRAFT VERSUS HOST DISEASE
     Dosage: 2.5 mg/kg, qd (day-3 to day-2 of AHSCT)
     Route: 065
     Dates: start: 20111007, end: 20111008
  2. THYMOGLOBULINE [Suspect]
     Indication: BONE MARROW CONDITIONING REGIMEN
  3. FLUDARA [Suspect]
     Indication: BONE MARROW CONDITIONING REGIMEN
     Dosage: day-6 to day-2 of AHSCT
     Route: 065
     Dates: start: 20111004, end: 20111008
  4. BUSULFAN [Concomitant]
     Indication: BONE MARROW CONDITIONING REGIMEN
     Dosage: UNK
     Route: 065
     Dates: start: 20111005, end: 20111006
  5. CYCLOSPORINE [Concomitant]
     Indication: PROPHYLAXIS AGAINST GRAFT VERSUS HOST DISEASE
     Dosage: UNK
     Route: 065
     Dates: start: 20111004
  6. CYCLOSPORINE [Concomitant]
     Indication: BONE MARROW CONDITIONING REGIMEN

REACTIONS (1)
  - Hepatitis [Not Recovered/Not Resolved]
